FAERS Safety Report 12329718 (Version 3)
Quarter: 2016Q2

REPORT INFORMATION
  Report Type: Spontaneous
  Country: JP (occurrence: JP)
  Receive Date: 20160503
  Receipt Date: 20160609
  Transmission Date: 20160815
  Serious: Yes (Hospitalization, Other)
  Sender: FDA-Public Use
  Company Number: JP-ASTRAZENECA-2016SE45440

PATIENT
  Age: 14719 Day
  Sex: Female
  Weight: 50 kg

DRUGS (1)
  1. FASLODEX [Suspect]
     Active Substance: FULVESTRANT
     Indication: BREAST CANCER FEMALE
     Route: 030
     Dates: start: 20160411, end: 20160411

REACTIONS (2)
  - Interstitial lung disease [Recovered/Resolved]
  - Metastases to lymph nodes [Unknown]

NARRATIVE: CASE EVENT DATE: 20160415
